FAERS Safety Report 15537400 (Version 4)
Quarter: 2018Q4

REPORT INFORMATION
  Report Type: Spontaneous
  Country: US (occurrence: US)
  Receive Date: 20181022
  Receipt Date: 20181127
  Transmission Date: 20190205
  Serious: No
  Sender: FDA-Public Use
  Company Number: US-TEVA-2018-US-964545

PATIENT
  Sex: Female

DRUGS (2)
  1. ATENOLOL TEVA [Suspect]
     Active Substance: ATENOLOL
     Indication: HYPERTENSION
     Route: 065
     Dates: start: 20181004
  2. ATENOLOL TEVA [Suspect]
     Active Substance: ATENOLOL
     Route: 065

REACTIONS (2)
  - Blood pressure increased [Recovered/Resolved]
  - Drug ineffective [Unknown]

NARRATIVE: CASE EVENT DATE: 20181004
